FAERS Safety Report 9868452 (Version 1)
Quarter: 2014Q1

REPORT INFORMATION
  Report Type: Spontaneous
  Country: US (occurrence: US)
  Receive Date: 20140204
  Receipt Date: 20140204
  Transmission Date: 20141002
  Serious: Yes (Other)
  Sender: FDA-Public Use
  Company Number: US-B.I. PHARMACEUTICALS,INC./RIDGEFIELD-2014-BI-04478BP

PATIENT
  Age: 83 Year
  Sex: Male

DRUGS (10)
  1. PRADAXA [Suspect]
     Indication: CEREBROVASCULAR ACCIDENT PROPHYLAXIS
     Dosage: 300 MG
     Route: 048
     Dates: start: 201303
  2. PRADAXA [Suspect]
     Indication: ATRIAL FIBRILLATION
  3. ALFUZOSIN [Concomitant]
     Indication: PROSTATOMEGALY
     Dosage: 10 MG
     Route: 048
  4. DIGOXIN [Concomitant]
     Indication: ATRIAL FIBRILLATION
     Dosage: 0.125 MG
     Route: 048
  5. METHIMAZOLE [Concomitant]
     Indication: HYPERTHYROIDISM
     Dosage: 20 MG
     Route: 048
  6. OMEPRAZOLE [Concomitant]
     Indication: ABDOMINAL DISCOMFORT
     Dosage: 20 MG
     Route: 048
  7. LISINOPRIL [Concomitant]
     Indication: PRODUCT USED FOR UNKNOWN INDICATION
     Dosage: 2.5 MG
     Route: 048
  8. CARVADILOL [Concomitant]
     Indication: CARDIAC DISORDER
     Dosage: 6.25 MG
     Route: 048
  9. FUROSEMIDE [Concomitant]
     Indication: FLUID RETENTION
     Dosage: 40 MG
     Route: 048
  10. FINESTERIDE [Concomitant]
     Indication: PROSTATOMEGALY
     Dosage: 5 MG
     Route: 048

REACTIONS (5)
  - Skin cancer [Not Recovered/Not Resolved]
  - Nausea [Recovered/Resolved]
  - Cholelithiasis [Recovered/Resolved]
  - Abnormal loss of weight [Recovered/Resolved]
  - Hiccups [Not Recovered/Not Resolved]
